FAERS Safety Report 14978235 (Version 1)
Quarter: 2018Q2

REPORT INFORMATION
  Report Type: Spontaneous
  Country: US (occurrence: US)
  Receive Date: 20180606
  Receipt Date: 20180606
  Transmission Date: 20180711
  Serious: No
  Sender: FDA-Public Use
  Company Number: US-SA-2018SA148288

PATIENT
  Age: 33 Year
  Sex: Female

DRUGS (16)
  1. TYLENOL [Concomitant]
     Active Substance: ACETAMINOPHEN
     Dosage: 1 DF
     Route: 048
     Dates: start: 20160426
  2. EPINEPHRINE. [Concomitant]
     Active Substance: EPINEPHRINE
     Indication: ANAPHYLACTIC REACTION
     Dosage: UNK
     Dates: start: 20160712
  3. CEREZYME [Suspect]
     Active Substance: IMIGLUCERASE
     Dosage: 3600 DF, QOW
     Route: 041
     Dates: start: 19940728
  4. OXYCODONE [Concomitant]
     Active Substance: OXYCODONE
     Dosage: 1 DF, UNK
     Route: 048
     Dates: start: 20171020
  5. OXYBUTYNIN. [Concomitant]
     Active Substance: OXYBUTYNIN CHLORIDE
     Dosage: 1 DF, BID
     Route: 048
     Dates: start: 20170406
  6. VITAMIN C [ASCORBIC ACID] [Concomitant]
     Dosage: 1 DF, 1X
     Route: 048
     Dates: start: 20160426
  7. NORMAL SALINE [Concomitant]
     Active Substance: SODIUM CHLORIDE
     Dosage: UNK UNK, UNK
     Route: 042
     Dates: start: 20160712
  8. CEPHALEXIN [CEFALEXIN] [Concomitant]
     Dosage: 1 DF, BID
     Route: 048
     Dates: start: 20170430
  9. METHADONE [Concomitant]
     Active Substance: METHADONE HYDROCHLORIDE
     Dosage: 1 DF, BID
     Route: 048
     Dates: start: 20170411
  10. STERILE WATER [Concomitant]
     Active Substance: WATER
     Dosage: UNK UNK, UNK
     Route: 042
     Dates: start: 20160712
  11. GABAPENTIN. [Concomitant]
     Active Substance: GABAPENTIN
     Dosage: 1 DF, BID
     Route: 048
     Dates: start: 20170104
  12. MULTIVITAMINS [VITAMINS NOS] [Concomitant]
     Dosage: UNK
  13. DOXYCYCLINE. [Concomitant]
     Active Substance: DOXYCYCLINE
     Dosage: 1 DF, BID
     Route: 048
     Dates: start: 20171003
  14. SODIUM CHLORIDE. [Concomitant]
     Active Substance: SODIUM CHLORIDE
     Dosage: UNK UNK, UNK
     Route: 042
     Dates: start: 20160712
  15. AUGMENTINE [AMOXICILLIN;CLAVULANIC ACID] [Concomitant]
     Dosage: 1 DF, BID
     Route: 048
     Dates: start: 20171020
  16. FAMOTIDINE. [Concomitant]
     Active Substance: FAMOTIDINE
     Dosage: 10 MG
     Route: 048
     Dates: start: 20170101

REACTIONS (1)
  - Osteomyelitis [Not Recovered/Not Resolved]
